FAERS Safety Report 7627835-6 (Version None)
Quarter: 2011Q3

REPORT INFORMATION
  Report Type: 
  Country: None (occurrence: None)
  Receive Date: 20110721
  Receipt Date: 20110711
  Transmission Date: 20111222
  Serious: Yes (Death, Hospitalization, Disabling, Other)
  Sender: FDA-Public Use
  Company Number: DE-MILLENNIUM PHARMACEUTICALS, INC.-2011-01298

PATIENT

DRUGS (11)
  1. DEXAMETHASONE [Suspect]
     Dosage: 2 MG, UNK
     Dates: end: 20100201
  2. PANTOZOL                           /01263202/ [Concomitant]
     Indication: PRODUCT USED FOR UNKNOWN INDICATION
     Dosage: 20 MG, UNK
  3. LYRICA [Concomitant]
     Indication: PRODUCT USED FOR UNKNOWN INDICATION
     Dosage: 150 MG, UNK
  4. DEXAMETHASONE [Suspect]
     Indication: MULTIPLE MYELOMA
     Dosage: UNK
     Dates: start: 20080201, end: 20080701
  5. DEXAMETHASONE [Suspect]
     Dosage: UNK
     Dates: start: 20080901, end: 20081101
  6. ATACAND [Concomitant]
     Indication: PRODUCT USED FOR UNKNOWN INDICATION
     Dosage: 16 UNK, UNK
  7. AMLODIPINE BESYLATE [Concomitant]
     Indication: PRODUCT USED FOR UNKNOWN INDICATION
     Dosage: 5 MG, UNK
  8. VELCADE [Suspect]
     Indication: MULTIPLE MYELOMA
     Dosage: UNK
     Dates: start: 20080201, end: 20080701
  9. VELCADE [Suspect]
     Dosage: UNK
     Dates: start: 20080901, end: 20081101
  10. ADRIAMYCIN PFS [Suspect]
     Indication: MULTIPLE MYELOMA
     Dosage: UNK
     Dates: start: 20080901, end: 20081101
  11. ACYCLOVIR [Concomitant]
     Indication: PRODUCT USED FOR UNKNOWN INDICATION
     Dosage: 400 MG, UNK

REACTIONS (4)
  - MULTIPLE MYELOMA [None]
  - VIITH NERVE PARALYSIS [None]
  - METASTASES TO MENINGES [None]
  - STREPTOCOCCAL BACTERAEMIA [None]
